FAERS Safety Report 18146188 (Version 2)
Quarter: 2024Q1

REPORT INFORMATION
  Report Type: Spontaneous
  Country: CA (occurrence: CA)
  Receive Date: 20200813
  Receipt Date: 20240212
  Transmission Date: 20240410
  Serious: Yes (Hospitalization)
  Sender: FDA-Public Use
  Company Number: CA-ANIPHARMA-2020-CA-001508

PATIENT
  Sex: Male

DRUGS (12)
  1. CANDESARTAN CILEXETIL [Suspect]
     Active Substance: CANDESARTAN CILEXETIL
     Indication: Product used for unknown indication
     Route: 048
  2. TYLENOL [Suspect]
     Active Substance: ACETAMINOPHEN
     Route: 065
  3. VALSARTAN [Suspect]
     Active Substance: VALSARTAN
     Dosage: 80 MG UNK / DOSE TEXT: 80 / DOSE TEXT: 80
     Route: 065
  4. VENTOLIN [Suspect]
     Active Substance: ALBUTEROL SULFATE
     Route: 065
  5. SYMBICORT [Suspect]
     Active Substance: BUDESONIDE\FORMOTEROL FUMARATE DIHYDRATE
     Dosage: DOSE TEXT: UNKNOWN DOSE AND FREQUENCY / DOSE TEXT: UNKNOWN DOSE AND FREQUENCY / DOSE TEXT: UNKNOWN D
     Route: 055
  6. CYCLOBENZAPRINE [Suspect]
     Active Substance: CYCLOBENZAPRINE
     Route: 048
  7. IMURAN [Suspect]
     Active Substance: AZATHIOPRINE
     Dosage: 50 MG DAILY / DOSE TEXT: 50 / DOSE TEXT: 50 / DOSE TEXT: 200 / DOSE TEXT: 200 / DOSE TEXT: 200
     Route: 065
  8. NAPROSYN [Suspect]
     Active Substance: NAPROXEN
     Route: 065
  9. ALBUTEROL [Suspect]
     Active Substance: ALBUTEROL
     Route: 065
  10. PREDNISONE [Suspect]
     Active Substance: PREDNISONE
     Route: 065
  11. SILDENAFIL CITRATE [Suspect]
     Active Substance: SILDENAFIL CITRATE
     Route: 065
  12. TAZOBACTAM [Suspect]
     Active Substance: TAZOBACTAM
     Dosage: 4 G UNK / DOSE TEXT: 4 / DOSE TEXT: 4
     Route: 042

REACTIONS (5)
  - Chills [Unknown]
  - Lymphocyte count [Unknown]
  - Neutrophil count increased [Unknown]
  - Platelet count decreased [Unknown]
  - Pyrexia [Unknown]

NARRATIVE: CASE EVENT DATE: 20180601
